FAERS Safety Report 12000485 (Version 4)
Quarter: 2016Q1

REPORT INFORMATION
  Report Type: Report from Study
  Country: US (occurrence: US)
  Receive Date: 20160204
  Receipt Date: 20160330
  Transmission Date: 20160526
  Serious: Yes (Other)
  Sender: FDA-Public Use
  Company Number: US-GILEAD-2016-0196304

PATIENT
  Age: 54 Year
  Sex: Male
  Weight: 75.7 kg

DRUGS (4)
  1. AMBRISENTAN [Suspect]
     Active Substance: AMBRISENTAN
     Indication: PRODUCT USED FOR UNKNOWN INDICATION
     Dosage: 10 MG, QD
     Route: 065
     Dates: start: 20150717
  2. TYVASO [Concomitant]
     Active Substance: TREPROSTINIL
     Indication: PRODUCT USED FOR UNKNOWN INDICATION
     Route: 065
  3. REMODULIN [Suspect]
     Active Substance: TREPROSTINIL
     Indication: PULMONARY HYPERTENSION
     Dosage: 0.018 UG/KG, UNK
     Route: 058
     Dates: start: 20150909
  4. REVATIO [Concomitant]
     Active Substance: SILDENAFIL CITRATE
     Route: 065

REACTIONS (8)
  - Infusion site pain [Unknown]
  - Asthenia [Unknown]
  - Peripheral coldness [Unknown]
  - Dyspnoea [Unknown]
  - Right ventricular failure [Unknown]
  - Presyncope [Unknown]
  - Fatigue [Unknown]
  - Waist circumference increased [Unknown]
